FAERS Safety Report 5371679-5 (Version None)
Quarter: 2007Q2

REPORT INFORMATION
  Report Type: 
  Country: None (occurrence: None)
  Receive Date: 20070627
  Receipt Date: 20070615
  Transmission Date: 20071010
  Serious: Yes (Other)
  Sender: FDA-Public Use
  Company Number: FR-BAYER-200710331BFR

PATIENT
  Age: 59 Year
  Sex: Male
  Weight: 55 kg

DRUGS (12)
  1. SORAFENIB OR PLACEBO [Suspect]
     Indication: NON-SMALL CELL LUNG CANCER
     Dosage: TOTAL DAILY DOSE: 800 MG  UNIT DOSE: 200 MG
     Route: 048
     Dates: start: 20070424, end: 20070522
  2. GEMCITABINE HCL [Suspect]
     Indication: NON-SMALL CELL LUNG CANCER
     Route: 042
     Dates: start: 20070601
  3. GEMCITABINE HCL [Suspect]
     Route: 042
     Dates: start: 20070424, end: 20070601
  4. CISPLATIN [Suspect]
     Indication: NON-SMALL CELL LUNG CANCER
     Route: 042
     Dates: start: 20070601
  5. CISPLATIN [Suspect]
     Route: 042
     Dates: start: 20070424, end: 20070601
  6. PRIMPERAN INJ [Concomitant]
     Indication: PROPHYLAXIS OF NAUSEA AND VOMITING
     Dates: start: 20070424, end: 20070426
  7. CORTANCYL [Concomitant]
     Indication: BACK PAIN
     Route: 048
     Dates: start: 20070424, end: 20070425
  8. CORTANCYL [Concomitant]
     Route: 048
     Dates: start: 20070301, end: 20070424
  9. OXYNORM [Concomitant]
     Indication: BACK PAIN
     Route: 048
     Dates: start: 20070301, end: 20070424
  10. OXYNORM [Concomitant]
     Route: 048
     Dates: start: 20070424
  11. CLINUTREN [Concomitant]
     Indication: UNEVALUABLE EVENT
     Route: 048
     Dates: start: 20070501
  12. ZOFRAN [Concomitant]
     Indication: UNEVALUABLE EVENT
     Dosage: TOTAL DAILY DOSE: 16 MG

REACTIONS (2)
  - NEUTROPENIA [None]
  - PALMAR-PLANTAR ERYTHRODYSAESTHESIA SYNDROME [None]
